FAERS Safety Report 5427046-9 (Version None)
Quarter: 2007Q3

REPORT INFORMATION
  Report Type: 
  Country: None (occurrence: None)
  Receive Date: 20070824
  Receipt Date: 20070824
  Transmission Date: 20080115
  Serious: Yes (Hospitalization)
  Sender: FDA-Public Use
  Company Number: None

PATIENT
  Age: 47 Year
  Sex: Male
  Weight: 104.5 kg

DRUGS (6)
  1. MYCOPHENOLATE MOFETIL [Suspect]
     Indication: IMMUNOSUPPRESSION
     Dosage: 500MG Q12H PO
     Route: 048
     Dates: start: 20050502, end: 20070518
  2. PREDNISONE [Concomitant]
  3. TAC [Concomitant]
  4. METOPROLOL SUCCINATE [Concomitant]
  5. LOSARTAN POTASSIUM [Concomitant]
  6. FEXOFENIDINE [Concomitant]

REACTIONS (4)
  - DIARRHOEA [None]
  - NAUSEA [None]
  - TREMOR [None]
  - VOMITING [None]
